FAERS Safety Report 24233552 (Version 1)
Quarter: 2024Q3

REPORT INFORMATION
  Report Type: Spontaneous
  Country: SK (occurrence: SK)
  Receive Date: 20240821
  Receipt Date: 20240821
  Transmission Date: 20241017
  Serious: Yes (Death, Hospitalization)
  Sender: MYLAN
  Company Number: SK-MYLANLABS-2024M1077047

PATIENT
  Age: 27 Year
  Sex: Male

DRUGS (4)
  1. VANCOMYCIN [Suspect]
     Active Substance: VANCOMYCIN
     Indication: Endocarditis
     Dosage: 1 GRAM, Q8H
     Route: 042
  2. VANCOMYCIN [Suspect]
     Active Substance: VANCOMYCIN
     Indication: Serratia infection
  3. GENTAMICIN [Suspect]
     Active Substance: GENTAMICIN
     Indication: Endocarditis
     Dosage: 320 MILLIGRAM, QD
     Route: 042
  4. GENTAMICIN [Suspect]
     Active Substance: GENTAMICIN
     Indication: Serratia infection

REACTIONS (1)
  - Drug ineffective [Fatal]
